FAERS Safety Report 21963279 (Version 2)
Quarter: 2023Q1

REPORT INFORMATION
  Report Type: Spontaneous
  Country: RU (occurrence: RU)
  Receive Date: 20230207
  Receipt Date: 20230308
  Transmission Date: 20230417
  Serious: Yes (Hospitalization)
  Sender: FDA-Public Use
  Company Number: RU-SA-2023SA041699

PATIENT
  Age: 42 Year
  Sex: Male

DRUGS (16)
  1. PLAVIX [Suspect]
     Active Substance: CLOPIDOGREL BISULFATE
     Indication: Antiplatelet therapy
     Dosage: 75 MG, QD
     Dates: start: 2020
  2. PLAVIX [Suspect]
     Active Substance: CLOPIDOGREL BISULFATE
     Dosage: 75 MG, QD
     Dates: start: 202012
  3. PLAVIX [Suspect]
     Active Substance: CLOPIDOGREL BISULFATE
     Dosage: 75 MG, QD;14:10-16:30
     Route: 048
  4. ACETYLCYSTEINE [Suspect]
     Active Substance: ACETYLCYSTEINE
     Indication: Symptomatic treatment
     Dosage: 200 MG, TID,1 SACHET
     Dates: start: 2020
  5. ACETYLCYSTEINE [Suspect]
     Active Substance: ACETYLCYSTEINE
     Dosage: 200 MG, TID,1 SACHET
     Dates: start: 202012
  6. ENOXAPARIN SODIUM [Suspect]
     Active Substance: ENOXAPARIN SODIUM
     Indication: Anticoagulant therapy
     Dosage: 0.8 G, BID
     Route: 058
     Dates: start: 2020
  7. ENOXAPARIN SODIUM [Suspect]
     Active Substance: ENOXAPARIN SODIUM
     Dosage: 0.8 G, BID;05:30?07:40
     Route: 058
  8. ENOXAPARIN SODIUM [Suspect]
     Active Substance: ENOXAPARIN SODIUM
     Dosage: 0.8 G, BID;14:10-16:30
     Route: 058
  9. PREDNISOLONE [Suspect]
     Active Substance: PREDNISOLONE
     Indication: Antiinflammatory therapy
     Dosage: 90 MG, BID
     Route: 042
     Dates: start: 2020
  10. PREDNISOLONE [Suspect]
     Active Substance: PREDNISOLONE
     Dosage: 90 MG, BID;14:10-16:30
     Route: 042
  11. IBUPROFEN [Suspect]
     Active Substance: IBUPROFEN
     Indication: Antiinflammatory therapy
     Dosage: 400 MG, BID
     Dates: start: 2020
  12. IBUPROFEN [Suspect]
     Active Substance: IBUPROFEN
     Dosage: 400 MG, BID
     Route: 048
     Dates: start: 202012
  13. FAVIPIRAVIR [Suspect]
     Active Substance: FAVIPIRAVIR
     Indication: Antiviral treatment
     Dosage: 1800 MG, QD
     Dates: start: 2020
  14. FAVIPIRAVIR [Suspect]
     Active Substance: FAVIPIRAVIR
     Dosage: 800 MG, BID
     Dates: start: 2020
  15. DEXTRAN [Suspect]
     Active Substance: DEXTRAN
     Dosage: 200, BID;05:30?07:40
     Route: 042
  16. XARELTO [Concomitant]
     Active Substance: RIVAROXABAN
     Dosage: 15 MG, QD
     Dates: start: 202012

REACTIONS (5)
  - Peripheral artery thrombosis [Unknown]
  - Pain in extremity [Unknown]
  - Peripheral coldness [Unknown]
  - Ischaemia [Unknown]
  - Hypoaesthesia [Unknown]

NARRATIVE: CASE EVENT DATE: 20201225
